FAERS Safety Report 23774410 (Version 1)
Quarter: 2024Q2

REPORT INFORMATION
  Report Type: Spontaneous
  Country: CA (occurrence: CA)
  Receive Date: 20240423
  Receipt Date: 20240423
  Transmission Date: 20240716
  Serious: Yes (Hospitalization, Other)
  Sender: FDA-Public Use
  Company Number: CA-ANIPHARMA-2022-CA-001240

PATIENT
  Age: 49 Year
  Sex: Female
  Weight: 59 kg

DRUGS (8)
  1. CANDESARTAN [Suspect]
     Active Substance: CANDESARTAN
     Indication: Hypertension
     Route: 065
  2. HUMIRA [Suspect]
     Active Substance: ADALIMUMAB
     Dosage: 40 MG WEEK
     Route: 058
  3. IRON [Suspect]
     Active Substance: IRON
     Route: 065
  4. LEFLUNOMIDE [Suspect]
     Active Substance: LEFLUNOMIDE
     Dosage: AS REQUIRED
     Route: 065
  5. ROSUVASTATIN [Concomitant]
     Active Substance: ROSUVASTATIN
     Dosage: 5 MG
     Route: 048
  6. LEVOTHYROXINE SODIUM [Concomitant]
     Active Substance: LEVOTHYROXINE SODIUM
     Route: 065
  7. ALBUTEROL SULFATE [Concomitant]
     Active Substance: ALBUTEROL SULFATE
     Dosage: AS REQUIRED
     Route: 065
  8. TINZAPARIN [Concomitant]
     Active Substance: TINZAPARIN
     Route: 065

REACTIONS (46)
  - Confusional state [Not Recovered/Not Resolved]
  - Delirium [Not Recovered/Not Resolved]
  - Diarrhoea [Not Recovered/Not Resolved]
  - Duodenitis [Not Recovered/Not Resolved]
  - Dyslipidaemia [Not Recovered/Not Resolved]
  - Dyspnoea [Not Recovered/Not Resolved]
  - Electrolyte imbalance [Not Recovered/Not Resolved]
  - Fatigue [Not Recovered/Not Resolved]
  - Gastric ulcer [Not Recovered/Not Resolved]
  - Gastritis [Not Recovered/Not Resolved]
  - Acute kidney injury [Not Recovered/Not Resolved]
  - Haematemesis [Not Recovered/Not Resolved]
  - Haemoglobin decreased [Not Recovered/Not Resolved]
  - Heavy menstrual bleeding [Not Recovered/Not Resolved]
  - Hepatic cirrhosis [Not Recovered/Not Resolved]
  - Hepatic encephalopathy [Not Recovered/Not Resolved]
  - Hepatic fibrosis [Not Recovered/Not Resolved]
  - Hepatic hypertrophy [Not Recovered/Not Resolved]
  - Hepatic mass [Not Recovered/Not Resolved]
  - Hepatic vein thrombosis [Not Recovered/Not Resolved]
  - Human chorionic gonadotropin negative [Not Recovered/Not Resolved]
  - Adverse drug reaction [Not Recovered/Not Resolved]
  - Hydronephrosis [Not Recovered/Not Resolved]
  - Hypothyroidism [Not Recovered/Not Resolved]
  - International normalised ratio increased [Not Recovered/Not Resolved]
  - Iron deficiency [Not Recovered/Not Resolved]
  - Liver disorder [Not Recovered/Not Resolved]
  - Melaena [Not Recovered/Not Resolved]
  - Memory impairment [Not Recovered/Not Resolved]
  - Non-alcoholic fatty liver [Not Recovered/Not Resolved]
  - Normocytic anaemia [Not Recovered/Not Resolved]
  - Pain in extremity [Not Recovered/Not Resolved]
  - Ammonia increased [Not Recovered/Not Resolved]
  - Portal hypertension [Not Recovered/Not Resolved]
  - Pyuria [Not Recovered/Not Resolved]
  - Splenomegaly [Not Recovered/Not Resolved]
  - Thrombocytopenia [Not Recovered/Not Resolved]
  - Type 2 diabetes mellitus [Not Recovered/Not Resolved]
  - Upper gastrointestinal haemorrhage [Not Recovered/Not Resolved]
  - Urinary tract infection [Not Recovered/Not Resolved]
  - Psoriatic arthropathy [Not Recovered/Not Resolved]
  - Anaemia [Not Recovered/Not Resolved]
  - Aphasia [Not Recovered/Not Resolved]
  - Ascites [Not Recovered/Not Resolved]
  - Asthma [Not Recovered/Not Resolved]
  - Blood albumin decreased [Not Recovered/Not Resolved]
